FAERS Safety Report 7583889-7 (Version None)
Quarter: 2011Q2

REPORT INFORMATION
  Report Type: 
  Country: None (occurrence: None)
  Receive Date: 20110628
  Receipt Date: 20110628
  Transmission Date: 20111010
  Serious: No
  Sender: FDA-Public Use
  Company Number: None

PATIENT
  Age: 59 Year
  Sex: Female
  Weight: 99.7913 kg

DRUGS (1)
  1. ZOLPIDEM [Suspect]
     Indication: SOMNOLENCE
     Dosage: 10MG AT BEDTIME PO
     Route: 048
     Dates: start: 20100101, end: 20100626

REACTIONS (3)
  - INCORRECT DOSE ADMINISTERED [None]
  - PRODUCT SUBSTITUTION ISSUE [None]
  - DRUG EFFECT DECREASED [None]
